FAERS Safety Report 23824787 (Version 1)
Quarter: 2024Q2

REPORT INFORMATION
  Report Type: Other
  Country: IN (occurrence: None)
  Receive Date: 20240507
  Receipt Date: 20240507
  Transmission Date: 20240716
  Serious: Yes (Death)
  Sender: FDA-Public Use
  Company Number: IN-ROCHE-3371970

PATIENT
  Age: 68 Year
  Sex: Male

DRUGS (2)
  1. TECENTRIQ [Suspect]
     Active Substance: ATEZOLIZUMAB
     Indication: Hepatocellular carcinoma
     Dosage: 8TH, 9TH AND 10TH CYCLE OF TECENTRIQ WAS SCHEDULED BY THE PHYSICIAN ON THE 25TH 28TH AND 25TH
     Route: 042
     Dates: start: 20230308
  2. AVASTIN [Suspect]
     Active Substance: BEVACIZUMAB
     Indication: Hepatocellular carcinoma
     Dosage: 8TH, 9TH AND 10TH CYCLE OF AVASTIN WAS SCHEDULED BY THE PHYSICIAN ON THE 25TH 28TH AND 25TH DAY
     Route: 042
     Dates: start: 20230308

REACTIONS (3)
  - Off label use [Unknown]
  - Lower respiratory tract infection [Unknown]
  - Death [Fatal]
